FAERS Safety Report 7366387-5 (Version None)
Quarter: 2011Q1

REPORT INFORMATION
  Report Type: 
  Country: None (occurrence: None)
  Receive Date: 20110322
  Receipt Date: 20110315
  Transmission Date: 20110831
  Serious: Yes (Life-Threatening, Hospitalization)
  Sender: FDA-Public Use
  Company Number: DE-BRISTOL-MYERS SQUIBB COMPANY-15618721

PATIENT
  Age: 50 Year
  Sex: Male
  Weight: 89 kg

DRUGS (11)
  1. KALINOR [Concomitant]
     Indication: PROPHYLAXIS
     Dates: start: 20100921
  2. CALCIUM CARBONATE [Concomitant]
     Indication: PROPHYLAXIS
     Dates: start: 20101123
  3. FOLIC ACID [Concomitant]
     Dates: start: 20100902
  4. DEXAMETHASONE [Concomitant]
     Dates: start: 20100902
  5. MAGNESIUM VERLA [Concomitant]
     Indication: PROPHYLAXIS
     Dates: start: 20100921
  6. CISPLATIN [Suspect]
     Indication: HEAD AND NECK CANCER
     Dosage: DAY 1 EVERY 21 DAYS
     Route: 042
  7. PEMETREXED DISODIUM [Suspect]
     Indication: HEAD AND NECK CANCER
     Dosage: DAY 1 EVERY 21 DAYS,176 DAYS 01MAR11,INTERRUPTED ON 15MAR2011.
     Route: 042
     Dates: start: 20100907
  8. METOPROLOL [Concomitant]
     Indication: HYPERTENSION
  9. RAMIPRIL [Concomitant]
     Indication: HYPERTENSION
  10. VITAMIN B-12 [Concomitant]
     Dates: start: 20100902
  11. CETUXIMAB [Suspect]
     Indication: HEAD AND NECK CANCER
     Dosage: DAY 1 CYCLE ONE ONLY,250MG/M2 WEEKLY,01MAR11,INTERRUPTED ON 15MAR2011.
     Route: 042

REACTIONS (1)
  - CARDIO-RESPIRATORY ARREST [None]
